FAERS Safety Report 21554260 (Version 3)
Quarter: 2022Q4

REPORT INFORMATION
  Report Type: Other
  Country: US (occurrence: None)
  Receive Date: 20221104
  Receipt Date: 20221206
  Transmission Date: 20230113
  Serious: Yes (Hospitalization)
  Sender: FDA-Public Use
  Company Number: US-ROCHE-3212441

PATIENT
  Age: 59 Year
  Sex: Male
  Weight: 74.910 kg

DRUGS (1)
  1. OCREVUS [Suspect]
     Active Substance: OCRELIZUMAB
     Indication: Relapsing-remitting multiple sclerosis
     Dosage: ONGOING: NO, INFUSE 600MG INTRAVENOUSLY EVERY 6 MONTH(S), DATE OF INITIAL INFUSIONS: 29/MAR/2019, DA
     Route: 042
     Dates: end: 202204

REACTIONS (1)
  - Pneumonia [Recovered/Resolved]

NARRATIVE: CASE EVENT DATE: 20140101
